FAERS Safety Report 18083741 (Version 1)
Quarter: 2020Q3

REPORT INFORMATION
  Report Type: Spontaneous
  Country: US (occurrence: US)
  Receive Date: 20200728
  Receipt Date: 20200728
  Transmission Date: 20201103
  Serious: No
  Sender: FDA-Public Use
  Company Number: US-PERRIGO-20US001031

PATIENT
  Age: 33 Year
  Sex: Male
  Weight: 102.04 kg

DRUGS (4)
  1. MINOXIDIL. [Suspect]
     Active Substance: MINOXIDIL
     Dosage: 1 ML, BID
     Route: 061
     Dates: start: 201911, end: 20200116
  2. MINOXIDIL. [Suspect]
     Active Substance: MINOXIDIL
     Indication: ALOPECIA
     Dosage: 1 ML, BID
     Route: 061
     Dates: start: 201906, end: 20190903
  3. FINASTERIDE. [Suspect]
     Active Substance: FINASTERIDE
     Dosage: 1 TABLET, QD
     Route: 048
     Dates: start: 201911, end: 20200116
  4. FINASTERIDE. [Suspect]
     Active Substance: FINASTERIDE
     Indication: ALOPECIA
     Dosage: 1 TABLET, QD
     Route: 048
     Dates: start: 201906, end: 20190903

REACTIONS (3)
  - Libido decreased [Not Recovered/Not Resolved]
  - Sperm concentration decreased [Not Recovered/Not Resolved]
  - Ejaculation failure [Not Recovered/Not Resolved]

NARRATIVE: CASE EVENT DATE: 201908
